FAERS Safety Report 21996406 (Version 6)
Quarter: 2025Q1

REPORT INFORMATION
  Report Type: Spontaneous
  Country: US (occurrence: US)
  Receive Date: 20230215
  Receipt Date: 20250115
  Transmission Date: 20250409
  Serious: Yes (Hospitalization, Other)
  Sender: PFIZER
  Company Number: US-PFIZER INC-PV202300027986

PATIENT
  Age: 66 Year
  Sex: Female
  Weight: 122.47 kg

DRUGS (3)
  1. IBRANCE [Suspect]
     Active Substance: PALBOCICLIB
     Indication: Hormone receptor positive breast cancer
     Route: 048
     Dates: start: 20230201
  2. IBRANCE [Suspect]
     Active Substance: PALBOCICLIB
     Indication: Invasive ductal breast carcinoma
  3. LETROZOLE [Concomitant]
     Active Substance: LETROZOLE

REACTIONS (7)
  - Influenza [Not Recovered/Not Resolved]
  - Leukopenia [Unknown]
  - Neutropenia [Unknown]
  - Nausea [Unknown]
  - Fatigue [Unknown]
  - Nasal congestion [Not Recovered/Not Resolved]
  - Malaise [Unknown]
